FAERS Safety Report 7822257-7 (Version None)
Quarter: 2011Q4

REPORT INFORMATION
  Report Type: 
  Country: None (occurrence: None)
  Receive Date: 20111018
  Receipt Date: 20110328
  Transmission Date: 20120403
  Serious: No
  Sender: FDA-Public Use
  Company Number: US-ASTRAZENECA-2010SE24046

PATIENT
  Age: 66 Year
  Sex: Male

DRUGS (5)
  1. SYMBICORT [Suspect]
     Indication: EMPHYSEMA
     Dosage: 640 TWO TIMES A DAY
     Route: 055
  2. PREDNISONE [Concomitant]
  3. VALIUM [Concomitant]
  4. NEXIUM [Suspect]
     Route: 048
  5. CADUET [Concomitant]

REACTIONS (5)
  - INTENTIONAL DRUG MISUSE [None]
  - BACK PAIN [None]
  - ERYTHEMA [None]
  - BRONCHITIS [None]
  - EMPHYSEMA [None]
